FAERS Safety Report 6440400-1 (Version None)
Quarter: 2009Q4

REPORT INFORMATION
  Report Type: 
  Country: None (occurrence: None)
  Receive Date: 20091113
  Receipt Date: 20091111
  Transmission Date: 20100525
  Serious: Yes (Death)
  Sender: FDA-Public Use
  Company Number: PHHO2009ES14039

PATIENT
  Sex: Female

DRUGS (3)
  1. RAD 666 RAD+TAB [Suspect]
     Indication: LIVER TRANSPLANT
  2. TACROLIMUS COMP-TAC+ [Suspect]
     Indication: LIVER TRANSPLANT
  3. CORTICOSTEROIDS [Concomitant]

REACTIONS (1)
  - DEATH [None]
